FAERS Safety Report 14692529 (Version 2)
Quarter: 2018Q2

REPORT INFORMATION
  Report Type: Spontaneous
  Country: US (occurrence: US)
  Receive Date: 20180329
  Receipt Date: 20180627
  Transmission Date: 20180711
  Serious: No
  Sender: FDA-Public Use
  Company Number: US-PFIZER INC-2018129105

PATIENT
  Sex: Male
  Weight: 63 kg

DRUGS (1)
  1. NEURONTIN [Suspect]
     Active Substance: GABAPENTIN
     Indication: MIGRAINE
     Dosage: UNK

REACTIONS (5)
  - Back pain [Unknown]
  - Product use in unapproved indication [Unknown]
  - Pain [Unknown]
  - Condition aggravated [Unknown]
  - Neuralgia [Unknown]
